FAERS Safety Report 7039851-6 (Version None)
Quarter: 2010Q4

REPORT INFORMATION
  Report Type: 
  Country: None (occurrence: None)
  Receive Date: 20101012
  Receipt Date: 20100930
  Transmission Date: 20110411
  Serious: Yes (Hospitalization)
  Sender: FDA-Public Use
  Company Number: JP-AMGEN-QUU438985

PATIENT
  Sex: Female
  Weight: 41 kg

DRUGS (16)
  1. ENBREL [Suspect]
     Indication: RHEUMATOID ARTHRITIS
     Dosage: NOT PROVIDED
     Route: 058
     Dates: start: 20060101
  2. ENBREL [Suspect]
     Route: 058
     Dates: start: 20070207, end: 20070423
  3. ENBREL [Suspect]
     Route: 058
     Dates: start: 20070604, end: 20091007
  4. ENBREL [Suspect]
     Route: 058
     Dates: start: 20100222, end: 20100305
  5. PREDONINE [Suspect]
     Indication: RHEUMATOID ARTHRITIS
     Route: 048
  6. PREDNISOLONE [Suspect]
     Indication: RHEUMATOID ARTHRITIS
     Route: 048
  7. FOLIC ACID [Concomitant]
     Indication: FOLATE DEFICIENCY
     Route: 048
  8. ACTONEL [Concomitant]
     Indication: OSTEOPOROSIS
     Route: 048
  9. URSO 250 [Concomitant]
     Indication: AUTOIMMUNE HEPATITIS
     Route: 048
  10. ATELEC [Concomitant]
     Indication: HYPERTENSION
     Route: 048
  11. LOXONIN [Concomitant]
     Indication: RHEUMATOID ARTHRITIS
     Route: 048
  12. GASTER [Concomitant]
     Indication: GASTRIC ULCER
     Route: 048
  13. ONE-ALPHA [Concomitant]
     Indication: OSTEOPOROSIS
     Route: 048
  14. GLAKAY [Concomitant]
     Indication: OSTEOPOROSIS
     Route: 048
     Dates: end: 20100305
  15. RHEUMATREX [Concomitant]
     Indication: RHEUMATOID ARTHRITIS
     Route: 048
  16. TENORMIN [Concomitant]
     Indication: HYPERTENSION
     Route: 048

REACTIONS (11)
  - ABDOMINAL PAIN UPPER [None]
  - FALL [None]
  - FEMORAL NECK FRACTURE [None]
  - JOINT DESTRUCTION [None]
  - NAUSEA [None]
  - NECK PAIN [None]
  - POSTOPERATIVE WOUND INFECTION [None]
  - STAPHYLOCOCCAL INFECTION [None]
  - STAPHYLOCOCCAL SEPSIS [None]
  - SURGERY [None]
  - VOMITING [None]
